FAERS Safety Report 9290037 (Version 1)
Quarter: 2013Q2

REPORT INFORMATION
  Report Type: Spontaneous
  Country: IL (occurrence: None)
  Receive Date: 20130510
  Receipt Date: 20130510
  Transmission Date: 20140414
  Serious: Yes (Other)
  Sender: FDA-Public Use
  Company Number: PRED20130024

PATIENT
  Age: 73 Year
  Sex: Female

DRUGS (8)
  1. PREDNISONE [Suspect]
     Indication: PRODUCT USED FOR UNKNOWN INDICATION
     Route: 048
  2. ALBUTEROL SULFATE SALBUTAMOL) (100 MICROGRAM UNKNOWN) (SALBUTAMOL) [Concomitant]
  3. OMEPRAZOLE(OMEPRAZOLE)(20 MILLIGRAM, UNKNOWN)(OMEPRAZOLE) [Concomitant]
  4. SIMVASTATIN(SIMVASTATIN)(10 MILLIGRAM, UNKNOWN)(SIMVASTATIN) [Concomitant]
  5. HYDROXYL EHTYLCELLULOSE(HYETELLOSE)(EYE [Concomitant]
  6. LANOLIN OIL(WOOL FAT)(OPHTHALMIC OINTMENT/CREAM)(WOOL FAT) [Concomitant]
  7. CALCIUM(CALCIUM)(1200 MILLIGRAM, UNKNOWN)(CALCIUM) [Concomitant]
  8. VITAMIN D(ERGOCALCIFEROL) (600 IU (INTERNATIONAL UNIT), UNKNOWN) (ERGOCALCIFEROL) [Concomitant]

REACTIONS (1)
  - Osteonecrosis of jaw [None]
